FAERS Safety Report 16262379 (Version 4)
Quarter: 2020Q4

REPORT INFORMATION
  Report Type: Spontaneous
  Country: JP (occurrence: JP)
  Receive Date: 20190501
  Receipt Date: 20201019
  Transmission Date: 20210113
  Serious: Yes (Hospitalization, Other)
  Sender: FDA-Public Use
  Company Number: JP-009507513-1804JPN000736J

PATIENT
  Age: 69 Year
  Sex: Female
  Weight: 38 kg

DRUGS (2)
  1. KEYTRUDA [Suspect]
     Active Substance: PEMBROLIZUMAB
     Indication: LUNG ADENOCARCINOMA STAGE IV
     Dosage: 200 MILLIGRAM, Q3W
     Route: 041
     Dates: start: 20170829
  2. ALLERMIST [Concomitant]
     Active Substance: FLUTICASONE FUROATE
     Indication: RHINITIS ALLERGIC
     Dosage: 2 SPRAYS/ DAY
     Route: 045
     Dates: start: 20170925

REACTIONS (7)
  - Keratitis [Unknown]
  - Arthralgia [Recovering/Resolving]
  - Pyrexia [Not Recovered/Not Resolved]
  - Malignant neoplasm progression [Unknown]
  - Deep vein thrombosis [Recovering/Resolving]
  - Adrenal insufficiency [Recovered/Resolved]
  - Oedema peripheral [Not Recovered/Not Resolved]

NARRATIVE: CASE EVENT DATE: 20180514
